FAERS Safety Report 7427636-8 (Version None)
Quarter: 2011Q1

REPORT INFORMATION
  Report Type: 
  Country: None (occurrence: None)
  Receive Date: 20110302
  Receipt Date: 20110113
  Transmission Date: 20110831
  Serious: No
  Sender: FDA-Public Use
  Company Number: 018077

PATIENT
  Sex: Male

DRUGS (1)
  1. CIMZIA [Suspect]
     Indication: CROHN'S DISEASE
     Dosage: (400 MG 1X/4 WEEKS, LYO SUBCUTANEOUS)
     Route: 058
     Dates: start: 20090409

REACTIONS (3)
  - VOMITING [None]
  - MALAISE [None]
  - DIARRHOEA [None]
